FAERS Safety Report 5802340-8 (Version None)
Quarter: 2008Q3

REPORT INFORMATION
  Report Type: 
  Country: None (occurrence: None)
  Receive Date: 20080707
  Receipt Date: 20060710
  Transmission Date: 20090109
  Serious: Yes (Death)
  Sender: FDA-Public Use
  Company Number: CL-BOEHRINGER INGELHEIM GMBH, GERMANY-2008-BP-10264RA

PATIENT

DRUGS (1)
  1. TIOTROPIUM INHALATION POWDER [Suspect]

REACTIONS (1)
  - DEATH [None]
